FAERS Safety Report 23124511 (Version 1)
Quarter: 2023Q4

REPORT INFORMATION
  Report Type: Spontaneous
  Country: US (occurrence: None)
  Receive Date: 20231027
  Receipt Date: 20231027
  Transmission Date: 20240110
  Serious: No
  Sender: FDA-Public Use
  Company Number: None

PATIENT
  Sex: Female

DRUGS (2)
  1. STELARA [Suspect]
     Active Substance: USTEKINUMAB
     Dosage: FREQUENCY : MONTHLY;?
     Route: 058
     Dates: start: 202304
  2. MEDICAL MARIJUANA [Concomitant]

REACTIONS (5)
  - Therapeutic product effect decreased [None]
  - Frequent bowel movements [None]
  - Diarrhoea [None]
  - Abdominal pain [None]
  - Therapy interrupted [None]
